FAERS Safety Report 4863948-X (Version None)
Quarter: 2005Q4

REPORT INFORMATION
  Report Type: 
  Country: None (occurrence: None)
  Receive Date: 20051219
  Receipt Date: 20051206
  Transmission Date: 20060501
  Serious: Yes (Hospitalization)
  Sender: FDA-Public Use
  Company Number: HQWYE703523NOV05

PATIENT
  Age: 74 Year
  Sex: Male

DRUGS (13)
  1. INDERAL [Suspect]
     Indication: HYPERTENSION
     Dosage: 30 MG 1X PER 1 DAY ORAL
     Route: 048
     Dates: start: 20051019, end: 20051031
  2. INDERAL [Suspect]
     Indication: TACHYCARDIA
     Dosage: 30 MG 1X PER 1 DAY ORAL
     Route: 048
     Dates: start: 20051019, end: 20051031
  3. ASCOMP (ALDIOXA,) [Suspect]
     Indication: GASTRITIS
     Dosage: 2 DOSE 1X PER 1 DAY ORAL
     Route: 048
     Dates: start: 20051013, end: 20051028
  4. BISOLVON (BROMHEXINE HYDROCHLORIDE,) [Suspect]
     Indication: SPUTUM RETENTION
     Dosage: 12 MG 1X PER 1 DAY ORAL
     Route: 048
     Dates: start: 20051019, end: 20051028
  5. DIGOXIN [Suspect]
     Indication: SUPRAVENTRICULAR TACHYCARDIA
     Dosage: 0.125 MG 1X PER 1 DAY ORAL
     Route: 048
     Dates: start: 20051019, end: 20051028
  6. GRAMALIL (TIAPRIDE HYDROCHLORIDE,) [Suspect]
     Indication: DELIRIUM
     Dosage: 75 MG 1X PER 1 DAY ORAL
     Route: 048
     Dates: start: 20051013, end: 20051026
  7. NITRENDIPINE (NITRENDIPINE,) [Suspect]
     Indication: HYPERTENSION
     Dosage: 5 MG 1X PER 1 DAY ORAL
     Route: 048
     Dates: start: 20051013, end: 20051031
  8. LANSOPRAZOLE [Suspect]
     Indication: REFLUX OESOPHAGITIS
     Dosage: 30 MG 1X PER 1 DAY ORAL
     Route: 048
     Dates: start: 20051021, end: 20051028
  9. ENALAPRIL MALEATE [Concomitant]
  10. GLUCONSAN K (POTASSIUM GLUCONATE) [Concomitant]
  11. RANIDIN (RANITIDINE HYDROCHLORIDE) [Concomitant]
  12. ALLOID (SODIUM ALGINATE) [Concomitant]
  13. OMEPRAZOLE [Concomitant]

REACTIONS (8)
  - ALANINE AMINOTRANSFERASE INCREASED [None]
  - ASPARTATE AMINOTRANSFERASE INCREASED [None]
  - BLOOD ALKALINE PHOSPHATASE DECREASED [None]
  - BLOOD BILIRUBIN DECREASED [None]
  - CONDITION AGGRAVATED [None]
  - HEPATIC FUNCTION ABNORMAL [None]
  - RASH [None]
  - WHITE BLOOD CELL COUNT INCREASED [None]
